FAERS Safety Report 4446862-3 (Version None)
Quarter: 2004Q3

REPORT INFORMATION
  Report Type: 
  Country: None (occurrence: None)
  Receive Date: 20040908
  Receipt Date: 20040823
  Transmission Date: 20050211
  Serious: Yes (Other)
  Sender: FDA-Public Use
  Company Number: 2004223441BR

PATIENT
  Age: 30 Year
  Sex: Female

DRUGS (2)
  1. DEPO-PROVERA [Suspect]
     Indication: CONTRACEPTION
     Dosage: 150 MG/3 MONTHS, 1ST INJECTION, INTRAMUSCULAR
     Route: 030
     Dates: start: 20031229, end: 20031229
  2. DEPO-PROVERA [Suspect]
     Dosage: 150 MG/3 MONTHS. LAST INJECTION, INTRAMUSCULAR
     Route: 030
     Dates: start: 20040329, end: 20040329

REACTIONS (8)
  - BACK PAIN [None]
  - BREAST PAIN [None]
  - DRUG EXPOSURE DURING PREGNANCY [None]
  - DRUG INEFFECTIVE [None]
  - ECTOPIC PREGNANCY [None]
  - ECTOPIC PREGNANCY TERMINATION [None]
  - OEDEMA [None]
  - PREGNANCY WITH INJECTABLE CONTRACEPTIVE [None]
